FAERS Safety Report 8480940-7 (Version None)
Quarter: 2012Q3

REPORT INFORMATION
  Report Type: 
  Country: None (occurrence: None)
  Receive Date: 20120702
  Receipt Date: 20120621
  Transmission Date: 20120928
  Serious: Yes (Other)
  Sender: FDA-Public Use
  Company Number: CA-JNJFOC-20120610915

PATIENT
  Sex: Male

DRUGS (6)
  1. ALL OTHER THERAPEUTICS [Concomitant]
     Dosage: GTTS
     Route: 065
  2. METHOTREXATE [Concomitant]
     Route: 065
  3. PREDNISONE TAB [Concomitant]
     Route: 065
  4. REMICADE [Suspect]
     Indication: UVEITIS
     Route: 042
     Dates: start: 20100316
  5. ACTONEL [Concomitant]
     Route: 065
  6. REMICADE [Suspect]
     Indication: ANKYLOSING SPONDYLITIS
     Route: 042
     Dates: start: 20100316

REACTIONS (1)
  - INTRAOCULAR PRESSURE TEST ABNORMAL [None]
